FAERS Safety Report 9825156 (Version 1)
Quarter: 2014Q1

REPORT INFORMATION
  Report Type: Spontaneous
  Country: US (occurrence: US)
  Receive Date: 20140117
  Receipt Date: 20140117
  Transmission Date: 20141002
  Serious: Yes (Hospitalization)
  Sender: FDA-Public Use
  Company Number: US-JNJFOC-20140105080

PATIENT
  Age: 89 Year
  Sex: Female
  Weight: 72.58 kg

DRUGS (4)
  1. XARELTO [Suspect]
     Indication: THROMBOSIS PROPHYLAXIS
     Route: 048
     Dates: start: 20140101
  2. XARELTO [Suspect]
     Indication: HIP SURGERY
     Route: 048
     Dates: start: 20140101
  3. ADVAIR [Concomitant]
     Indication: CHRONIC OBSTRUCTIVE PULMONARY DISEASE
     Route: 065
  4. DIOVAN [Concomitant]
     Indication: HYPERTENSION
     Route: 065

REACTIONS (1)
  - Renal impairment [Unknown]
